FAERS Safety Report 8464269-9 (Version None)
Quarter: 2012Q2

REPORT INFORMATION
  Report Type: 
  Country: None (occurrence: None)
  Receive Date: 20120625
  Receipt Date: 20120620
  Transmission Date: 20120825
  Serious: Yes (Death, Other)
  Sender: FDA-Public Use
  Company Number: US-PFIZER INC-2012118777

PATIENT
  Sex: Female
  Weight: 72.562 kg

DRUGS (2)
  1. RELPAX [Suspect]
     Indication: MIGRAINE
     Dosage: UNKNOWN DOSE AS NEEDED
     Dates: start: 20020101
  2. ACETAMINOPHEN [Suspect]
     Indication: HEADACHE
     Dosage: UNK

REACTIONS (6)
  - NEPHROLITHIASIS [None]
  - URINARY TRACT INFECTION [None]
  - SEPTIC SHOCK [None]
  - CARDIAC ARREST [None]
  - DRUG INEFFECTIVE [None]
  - BACTERIAL TEST POSITIVE [None]
